FAERS Safety Report 5125492-4 (Version None)
Quarter: 2006Q3

REPORT INFORMATION
  Report Type: 
  Country: None (occurrence: None)
  Receive Date: 20060822
  Receipt Date: 20060623
  Transmission Date: 20061208
  Serious: No
  Sender: FDA-Public Use
  Company Number: PHEH2006US08206

PATIENT
  Age: 70 Year
  Sex: Female

DRUGS (4)
  1. ENABLEX [Suspect]
     Indication: HYPERTONIC BLADDER
     Dosage: 7.5 MG, QD
     Dates: start: 20060616
  2. CIPRO [Suspect]
     Indication: CYSTITIS
     Dosage: SEE IMAGE
     Dates: start: 20060616
  3. CIPRO [Suspect]
     Indication: CYSTITIS
     Dosage: SEE IMAGE
     Dates: start: 20060621
  4. ATIVAN [Concomitant]

REACTIONS (1)
  - ASTHENIA [None]
